FAERS Safety Report 4337473-9 (Version None)
Quarter: 2004Q2

REPORT INFORMATION
  Report Type: 
  Country: None (occurrence: None)
  Receive Date: 20040413
  Receipt Date: 20040413
  Transmission Date: 20050107
  Serious: Yes (Life-Threatening, Hospitalization)
  Sender: FDA-Public Use
  Company Number: None

PATIENT
  Age: 29 Year
  Sex: Male
  Weight: 88.4514 kg

DRUGS (1)
  1. INVANZ [Suspect]
     Indication: BACTERAEMIA
     Dosage: 1 GM IV QD
     Route: 042
     Dates: start: 20040309, end: 20040408

REACTIONS (1)
  - CONVULSION [None]
